FAERS Safety Report 13461234 (Version 5)
Quarter: 2017Q4

REPORT INFORMATION
  Report Type: Report from Study
  Country: US (occurrence: US)
  Receive Date: 20170420
  Receipt Date: 20171102
  Transmission Date: 20180320
  Serious: Yes (Death, Hospitalization)
  Sender: FDA-Public Use
  Company Number: US-EISAI MEDICAL RESEARCH-EC-2017-026824

PATIENT
  Age: 72 Year
  Sex: Female
  Weight: 41 kg

DRUGS (13)
  1. MULTIVITAMIN [Concomitant]
     Active Substance: VITAMINS
  2. INULIN [Concomitant]
     Active Substance: INULIN
  3. ERIBULIN [Suspect]
     Active Substance: ERIBULIN
     Route: 041
     Dates: start: 2017, end: 20170726
  4. PEMBROLIZUMAB. [Suspect]
     Active Substance: PEMBROLIZUMAB
     Indication: HER-2 POSITIVE BREAST CANCER
     Route: 041
     Dates: start: 20170414, end: 20170414
  5. PEMBROLIZUMAB. [Suspect]
     Active Substance: PEMBROLIZUMAB
     Route: 041
     Dates: start: 2017, end: 20170726
  6. LOVENOX [Concomitant]
     Active Substance: ENOXAPARIN SODIUM
  7. ERIBULIN [Suspect]
     Active Substance: ERIBULIN
     Indication: HER-2 POSITIVE BREAST CANCER
     Route: 041
     Dates: start: 20170414, end: 20170414
  8. FUROSEMIDE. [Concomitant]
     Active Substance: FUROSEMIDE
  9. ZOFRAN [Concomitant]
     Active Substance: ONDANSETRON HYDROCHLORIDE
  10. ACETAMINOPHEN. [Concomitant]
     Active Substance: ACETAMINOPHEN
  11. BACILLUS COAGULANS [Concomitant]
     Active Substance: BACILLUS COAGULANS
  12. CARVEDILOL. [Concomitant]
     Active Substance: CARVEDILOL
  13. ZOLEDRONIC ACID [Concomitant]
     Active Substance: ZOLEDRONIC ACID

REACTIONS (6)
  - Dyspnoea [Unknown]
  - Lung infection [Unknown]
  - Hypotension [Unknown]
  - Hypoxia [Unknown]
  - Pleural effusion [Unknown]
  - Neutropenia [Unknown]

NARRATIVE: CASE EVENT DATE: 20170417
